FAERS Safety Report 4863151-3 (Version None)
Quarter: 2005Q4

REPORT INFORMATION
  Report Type: 
  Country: None (occurrence: None)
  Receive Date: 20051201
  Receipt Date: 20050920
  Transmission Date: 20060501
  Serious: No
  Sender: FDA-Public Use
  Company Number: 2005-008714

PATIENT
  Age: 39 Year
  Sex: Male
  Weight: 73.5 kg

DRUGS (13)
  1. TRUVADA [Suspect]
     Indication: HIV INFECTION
     Dosage: 1 DOSAGE FORMS, 1 IN 1 D, ORAL
     Route: 048
     Dates: start: 20050307, end: 20050315
  2. VIREAD [Suspect]
     Indication: HIV INFECTION
     Dosage: ORAL
     Route: 048
     Dates: start: 20040109, end: 20050306
  3. VIREAD [Suspect]
     Indication: HIV INFECTION
     Dosage: ORAL
     Route: 048
     Dates: start: 20050316
  4. ATAZANAVIR (ATAZANAVIR) [Concomitant]
  5. DIDANOSINE [Concomitant]
  6. RITONAVIR (RITONAVIR) [Concomitant]
  7. LEVOTHYROXINE SODIUM [Concomitant]
  8. ALBUTEROL [Concomitant]
  9. FORMOTEROL FUMARATE (FORMOTEROL FUMARATE) [Concomitant]
  10. LORATADINE [Concomitant]
  11. IBUPROFEN [Concomitant]
  12. CODEINE/GUAIFENESIN (CHERACOL) [Concomitant]
  13. BUTALBITAL/CAFFEINE/ACETAMINOPHEN (AXOTAL) [Concomitant]

REACTIONS (4)
  - FEELING HOT [None]
  - HEADACHE [None]
  - HYPERHIDROSIS [None]
  - NAUSEA [None]
